APPROVED DRUG PRODUCT: IBUPROFEN
Active Ingredient: IBUPROFEN
Strength: 200MG
Dosage Form/Route: TABLET;ORAL
Application: A209076 | Product #001
Applicant: ULTRATAB LABORATORIES INC
Approved: Jan 6, 2020 | RLD: No | RS: No | Type: DISCN